FAERS Safety Report 9278620 (Version 2)
Quarter: 2013Q2

REPORT INFORMATION
  Report Type: Spontaneous
  Country: US (occurrence: US)
  Receive Date: 20130508
  Receipt Date: 20130527
  Transmission Date: 20140414
  Serious: No
  Sender: FDA-Public Use
  Company Number: US-PFIZER INC-2013138737

PATIENT
  Age: 47 Year
  Sex: Female

DRUGS (5)
  1. DOXYCYCLINE CALCIUM [Suspect]
     Indication: DERMATITIS
     Dosage: 100 MG, 2X/DAY
     Route: 048
     Dates: start: 20101118, end: 20101227
  2. IBUPROFEN [Concomitant]
     Dosage: UNK
  3. HYDROCHLOROTHIAZIDE [Concomitant]
     Dosage: UNK
  4. CLARITIN [Concomitant]
     Dosage: UNK
  5. ALPRAZOLAM [Concomitant]
     Dosage: UNK

REACTIONS (2)
  - Drug hypersensitivity [Unknown]
  - Nausea [Recovered/Resolved]
